FAERS Safety Report 7308493-7 (Version None)
Quarter: 2011Q1

REPORT INFORMATION
  Report Type: 
  Country: None (occurrence: None)
  Receive Date: 20110211
  Receipt Date: 20110201
  Transmission Date: 20110831
  Serious: Yes (Other)
  Sender: FDA-Public Use
  Company Number: LEO-2011-00133

PATIENT
  Sex: Male

DRUGS (1)
  1. INNOHEP [Suspect]
     Indication: JUGULAR VEIN THROMBOSIS
     Dosage: (1 IN 1 D),SUBCUTANEOUS
     Route: 058

REACTIONS (3)
  - OFF LABEL USE [None]
  - JUGULAR VEIN THROMBOSIS [None]
  - DRUG INEFFECTIVE [None]
